FAERS Safety Report 4304563-6 (Version None)
Quarter: 2004Q1

REPORT INFORMATION
  Report Type: 
  Country: None (occurrence: None)
  Receive Date: 20040224
  Receipt Date: 20040218
  Transmission Date: 20041129
  Serious: Yes (Hospitalization)
  Sender: FDA-Public Use
  Company Number: GB-JNJFOC-20040203654

PATIENT
  Age: 58 Year
  Sex: Female

DRUGS (9)
  1. REMICADE [Suspect]
     Indication: RHEUMATOID ARTHRITIS
     Dosage: INTRAVENOUS
     Route: 042
     Dates: start: 20030203
  2. METHOTREXATE [Concomitant]
  3. FOLIC ACID [Concomitant]
  4. ETODOLAC [Concomitant]
  5. DIDRONEL (ETIDRONATE SODIUM) [Concomitant]
  6. BECOTIDE (BECLOEMTASONE DIPROPIONATE) [Concomitant]
  7. PARACETAMOL (PARACETAMOL) [Concomitant]
  8. VITAMIN B (VITAMIN B) [Concomitant]
  9. COD LIVER OIL (COD-LIVER OIL) [Concomitant]

REACTIONS (7)
  - C-REACTIVE PROTEIN INCREASED [None]
  - CHILLS [None]
  - NEUTROPHIL COUNT INCREASED [None]
  - PROTEIN URINE PRESENT [None]
  - PYREXIA [None]
  - URINARY TRACT INFECTION [None]
  - WHITE BLOOD CELL COUNT INCREASED [None]
